FAERS Safety Report 13833970 (Version 1)
Quarter: 2017Q3

REPORT INFORMATION
  Report Type: Spontaneous
  Country: FR (occurrence: FR)
  Receive Date: 20170804
  Receipt Date: 20170804
  Transmission Date: 20171127
  Serious: Yes (Disabling)
  Sender: FDA-Public Use
  Company Number: FR-ROCHE-1972956

PATIENT
  Age: 46 Year
  Sex: Male
  Weight: 84 kg

DRUGS (16)
  1. HERCEPTIN [Suspect]
     Active Substance: TRASTUZUMAB
     Dosage: CYCLE 2
     Route: 042
     Dates: start: 20170323
  2. HERCEPTIN [Suspect]
     Active Substance: TRASTUZUMAB
     Dosage: CYCLE 3
     Route: 042
     Dates: start: 20170628
  3. CISPLATINE [Suspect]
     Active Substance: CISPLATIN
     Dosage: CYCLE 2
     Route: 042
     Dates: start: 20170607
  4. 5-FLUOROURACIL [Concomitant]
     Active Substance: FLUOROURACIL
     Route: 065
     Dates: start: 20170724
  5. HERCEPTIN [Suspect]
     Active Substance: TRASTUZUMAB
     Dosage: CYCLE 2
     Route: 042
     Dates: start: 20170607
  6. FLUOROURACILE ACCORD [Suspect]
     Active Substance: FLUOROURACIL
     Dosage: CYCLE 2
     Route: 042
     Dates: start: 20170607
  7. HERCEPTIN [Suspect]
     Active Substance: TRASTUZUMAB
     Indication: ADENOCARCINOMA GASTRIC
     Dosage: 6-8 MG/KG?CYCLE 1
     Route: 042
     Dates: start: 20170301
  8. FLUOROURACILE ACCORD [Suspect]
     Active Substance: FLUOROURACIL
     Dosage: CYCLE 3
     Route: 042
     Dates: start: 20170628
  9. CISPLATIN. [Concomitant]
     Active Substance: CISPLATIN
     Route: 065
     Dates: start: 20170724
  10. HERCEPTIN [Suspect]
     Active Substance: TRASTUZUMAB
     Route: 042
     Dates: start: 20170724
  11. FLUOROURACILE ACCORD [Suspect]
     Active Substance: FLUOROURACIL
     Indication: ADENOCARCINOMA GASTRIC
     Dosage: 50 MG/ML?CYCLE 1 (8000 MG)
     Route: 042
     Dates: start: 20170301
  12. FLUOROURACILE ACCORD [Suspect]
     Active Substance: FLUOROURACIL
     Dosage: CYCLE 1
     Route: 042
     Dates: start: 20170413
  13. CISPLATINE [Suspect]
     Active Substance: CISPLATIN
     Indication: ADENOCARCINOMA GASTRIC
     Dosage: 1MG/ML?CYCLE 1 (160 MG)
     Route: 042
     Dates: start: 20170301
  14. CISPLATINE [Suspect]
     Active Substance: CISPLATIN
     Dosage: CYCLE 1
     Route: 042
     Dates: start: 20170413
  15. HERCEPTIN [Suspect]
     Active Substance: TRASTUZUMAB
     Dosage: CYCLE 1
     Route: 042
     Dates: start: 20170413
  16. CISPLATINE [Suspect]
     Active Substance: CISPLATIN
     Dosage: CYCLE 3
     Route: 042
     Dates: start: 20170628

REACTIONS (2)
  - Vision blurred [Not Recovered/Not Resolved]
  - Papilloedema [Not Recovered/Not Resolved]

NARRATIVE: CASE EVENT DATE: 20170630
